FAERS Safety Report 4598565-2 (Version None)
Quarter: 2005Q1

REPORT INFORMATION
  Report Type: 
  Country: None (occurrence: None)
  Receive Date: 20050304
  Receipt Date: 20040720
  Transmission Date: 20050727
  Serious: Yes (Hospitalization)
  Sender: FDA-Public Use
  Company Number: US-MERCK-0407USA01745

PATIENT
  Age: 57 Year
  Sex: Male
  Weight: 84 kg

DRUGS (13)
  1. VIOXX [Suspect]
     Indication: EXOSTOSIS
     Route: 048
     Dates: start: 20000901, end: 20031101
  2. VIOXX [Suspect]
     Route: 048
     Dates: start: 19990101
  3. VIOXX [Suspect]
     Indication: PAIN
     Route: 048
     Dates: start: 20000901, end: 20031101
  4. VIOXX [Suspect]
     Route: 048
     Dates: start: 19990101
  5. ZYRTEC [Concomitant]
     Route: 065
  6. LOTREL [Concomitant]
     Route: 065
  7. LIPITOR [Concomitant]
     Indication: BLOOD CHOLESTEROL INCREASED
     Route: 065
  8. FUROSEMIDE [Concomitant]
     Indication: FLUID RETENTION
     Route: 065
  9. POTASSIUM (UNSPECIFIED) [Concomitant]
     Route: 065
  10. ASPIRIN [Concomitant]
     Indication: PROPHYLAXIS
     Route: 065
  11. CLARINEX [Concomitant]
     Route: 065
  12. FOLTX [Concomitant]
     Route: 065
  13. LEVAQUIN [Concomitant]
     Route: 065

REACTIONS (13)
  - ABDOMINAL DISTENSION [None]
  - ADENOIDAL HYPERTROPHY [None]
  - ANGINA PECTORIS [None]
  - BLOOD GLUCOSE INCREASED [None]
  - BLOOD TRIGLYCERIDES INCREASED [None]
  - CHRONIC SINUSITIS [None]
  - DEPRESSION [None]
  - GENERAL PHYSICAL HEALTH DETERIORATION [None]
  - HERNIA [None]
  - MYOCARDIAL INFARCTION [None]
  - OEDEMA PERIPHERAL [None]
  - OTITIS MEDIA CHRONIC [None]
  - SINUS DISORDER [None]
